FAERS Safety Report 4320970-X (Version None)
Quarter: 2004Q1

REPORT INFORMATION
  Report Type: 
  Country: None (occurrence: None)
  Receive Date: 20040318
  Receipt Date: 20040305
  Transmission Date: 20041129
  Serious: Yes (Life-Threatening, Other)
  Sender: FDA-Public Use
  Company Number: 2004S1000667

PATIENT
  Age: 72 Year
  Sex: Female

DRUGS (3)
  1. TRIFLUOPERAZINE HCL [Suspect]
     Indication: SLEEP DISORDER
     Dosage: 2MG Q HS, ORAL
     Route: 048
     Dates: start: 20040304
  2. ALPRAZOLAM [Concomitant]
  3. VALSARTAN [Concomitant]

REACTIONS (6)
  - CATARACT [None]
  - CEREBROVASCULAR ACCIDENT [None]
  - EYE HAEMORRHAGE [None]
  - EYE SWELLING [None]
  - POST PROCEDURAL COMPLICATION [None]
  - VISUAL ACUITY REDUCED [None]
